FAERS Safety Report 10763511 (Version 1)
Quarter: 2015Q1

REPORT INFORMATION
  Report Type: Report from Study
  Country: CA (occurrence: CA)
  Receive Date: 20150204
  Receipt Date: 20150204
  Transmission Date: 20150721
  Serious: Yes (Hospitalization, Other)
  Sender: FDA-Public Use
  Company Number: CA-MYLANLABS-2015M1003349

PATIENT

DRUGS (17)
  1. SUNITINIB [Suspect]
     Active Substance: SUNITINIB
     Indication: NON-SMALL CELL LUNG CANCER
     Dosage: 12.5 MG, TID
     Route: 048
     Dates: start: 20071228, end: 20080115
  2. PEMETREXED [Suspect]
     Active Substance: PEMETREXED
     Indication: NON-SMALL CELL LUNG CANCER
     Dosage: 400 MG/M2, Q21D
     Route: 042
     Dates: start: 20071227, end: 20080131
  3. METOPROLOL [Concomitant]
     Active Substance: METOPROLOL
     Dosage: UNK
     Route: 048
     Dates: start: 20060601
  4. CARBOPLATIN. [Suspect]
     Active Substance: CARBOPLATIN
     Indication: NON-SMALL CELL LUNG CANCER
     Dosage: 420 MG, Q21D
     Route: 042
     Dates: start: 20071227, end: 20080131
  5. RABEPRAZOLE [Concomitant]
     Active Substance: RABEPRAZOLE
     Dosage: UNK
     Route: 048
     Dates: start: 20080128
  6. FOLIC ACID. [Concomitant]
     Active Substance: FOLIC ACID
     Dosage: UNK
     Route: 048
     Dates: start: 20071219
  7. ATROVENT [Concomitant]
     Active Substance: IPRATROPIUM BROMIDE
     Dosage: UNK
     Route: 055
     Dates: start: 20080115
  8. CALCIUM MAGNESIUM + ZINC           /01320801/ [Concomitant]
     Dosage: UNK
     Route: 048
     Dates: start: 20060101
  9. DIOVAN [Concomitant]
     Active Substance: VALSARTAN
     Dosage: UNK
     Route: 048
     Dates: start: 20060601
  10. SOFLAX                             /00061602/ [Concomitant]
     Dosage: UNK
     Route: 048
     Dates: start: 20080204
  11. DECADRON [Concomitant]
     Active Substance: DEXAMETHASONE
     Dosage: UNK
     Route: 048
     Dates: start: 20080122
  12. ASA [Concomitant]
     Active Substance: ASPIRIN
     Dosage: UNK
     Route: 048
     Dates: start: 20071220
  13. VENTOLIN [Concomitant]
     Active Substance: ALBUTEROL SULFATE
     Dosage: UNK
     Route: 055
     Dates: start: 20080116
  14. SUNITINIB [Suspect]
     Active Substance: SUNITINIB
     Dosage: 25 MG, QD
     Dates: start: 20080201, end: 20080220
  15. BENADRYL [Concomitant]
     Active Substance: DIPHENHYDRAMINE HYDROCHLORIDE
     Dosage: UNK
     Route: 048
     Dates: start: 20060101
  16. METOCLOPRAMIDE. [Concomitant]
     Active Substance: METOCLOPRAMIDE
     Dosage: UNK
     Route: 048
     Dates: start: 20080128
  17. ECHINACEA                          /01323501/ [Concomitant]
     Dosage: UNK
     Route: 048
     Dates: start: 20060101

REACTIONS (3)
  - Atrial thrombosis [Unknown]
  - Fatigue [Recovering/Resolving]
  - Anaemia [Recovered/Resolved]

NARRATIVE: CASE EVENT DATE: 20080219
